FAERS Safety Report 9812705 (Version 1)
Quarter: 2014Q1

REPORT INFORMATION
  Report Type: Spontaneous
  Country: US (occurrence: US)
  Receive Date: 20140113
  Receipt Date: 20140113
  Transmission Date: 20141002
  Serious: Yes (Other)
  Sender: FDA-Public Use
  Company Number: 2013SP008326

PATIENT
  Age: 24 Year
  Sex: Male
  Weight: 58.05 kg

DRUGS (8)
  1. VANCOMYCIN [Suspect]
     Indication: STAPHYLOCOCCAL INFECTION
  2. LINEZOLID [Suspect]
     Indication: STAPHYLOCOCCAL INFECTION
     Route: 042
  3. LINEZOLID [Suspect]
     Indication: STAPHYLOCOCCAL INFECTION
     Route: 042
  4. LINEZOLID [Suspect]
     Indication: STAPHYLOCOCCAL INFECTION
     Route: 042
  5. LINEZOLID [Suspect]
     Indication: STAPHYLOCOCCAL INFECTION
     Route: 042
  6. SULFAMETHOXAZOLE [Suspect]
     Indication: STAPHYLOCOCCAL INFECTION
  7. TRIMETHOPRIM [Suspect]
     Indication: STAPHYLOCOCCAL INFECTION
  8. GAMUNEX [Concomitant]
     Indication: PRODUCT USED FOR UNKNOWN INDICATION

REACTIONS (2)
  - Drug ineffective [Unknown]
  - Staphylococcal infection [Unknown]
